FAERS Safety Report 7723944-1 (Version None)
Quarter: 2011Q3

REPORT INFORMATION
  Report Type: 
  Country: None (occurrence: None)
  Receive Date: 20110901
  Receipt Date: 20110819
  Transmission Date: 20111222
  Serious: Yes (Other)
  Sender: FDA-Public Use
  Company Number: US-ELI_LILLY_AND_COMPANY-US201105008047

PATIENT
  Age: 59 Year
  Sex: Female

DRUGS (3)
  1. FLEXERIL [Concomitant]
  2. HYDROCODONE BITARTRATE [Concomitant]
  3. FORTEO [Suspect]
     Indication: OSTEOPOROSIS
     Dosage: 20 UG, QD
     Dates: start: 20110501

REACTIONS (2)
  - NAUSEA [None]
  - MALIGNANT MELANOMA [None]
